FAERS Safety Report 7034322-5 (Version None)
Quarter: 2010Q4

REPORT INFORMATION
  Report Type: 
  Country: None (occurrence: None)
  Receive Date: 20101008
  Receipt Date: 20100923
  Transmission Date: 20110411
  Serious: Yes (Hospitalization)
  Sender: FDA-Public Use
  Company Number: PHHY2010DE58145

PATIENT
  Sex: Female

DRUGS (3)
  1. CGS 20267 T30748+ [Suspect]
     Indication: BREAST CANCER
     Dosage: 2.5 MG, DAILY
     Route: 048
     Dates: start: 20090226
  2. ZOMETA [Suspect]
     Indication: OSTEOPOROSIS
     Dosage: UNK
     Dates: start: 20100201
  3. ACTONEL [Concomitant]
     Dosage: UNK
     Dates: start: 20100201

REACTIONS (4)
  - ATRIAL FIBRILLATION [None]
  - CHEST PAIN [None]
  - OSTEOPOROSIS [None]
  - TACHYARRHYTHMIA [None]
